FAERS Safety Report 20541329 (Version 5)
Quarter: 2022Q3

REPORT INFORMATION
  Report Type: Report from Study
  Country: IT (occurrence: IT)
  Receive Date: 20220302
  Receipt Date: 20220927
  Transmission Date: 20221027
  Serious: Yes (Hospitalization, Other)
  Sender: FDA-Public Use
  Company Number: IT-TAKEDA-2021TUS076875

PATIENT
  Age: 76 Year
  Sex: Male

DRUGS (36)
  1. TEDUGLUTIDE [Suspect]
     Active Substance: TEDUGLUTIDE
     Indication: Short-bowel syndrome
     Dosage: 3.5 MILLIGRAM, QD
     Route: 042
     Dates: start: 20190926
  2. TEDUGLUTIDE [Suspect]
     Active Substance: TEDUGLUTIDE
     Indication: Short-bowel syndrome
     Dosage: 3.5 MILLIGRAM, QD
     Route: 042
     Dates: start: 20190926
  3. TEDUGLUTIDE [Suspect]
     Active Substance: TEDUGLUTIDE
     Indication: Short-bowel syndrome
     Dosage: 3.5 MILLIGRAM, QD
     Route: 042
     Dates: start: 20190926
  4. TEDUGLUTIDE [Suspect]
     Active Substance: TEDUGLUTIDE
     Indication: Short-bowel syndrome
     Dosage: 3.5 MILLIGRAM, QD
     Route: 042
     Dates: start: 20190926
  5. INSULIN GLARGINE [Concomitant]
     Active Substance: INSULIN GLARGINE
     Indication: Diabetes mellitus
     Dosage: 20 INTERNATIONAL UNIT
     Route: 065
     Dates: start: 202110
  6. CANRENOATE POTASSIUM [Concomitant]
     Active Substance: CANRENOATE POTASSIUM
     Indication: Nutritional supplementation
     Dosage: UNK, QD
     Route: 048
     Dates: start: 202110
  7. ROVIGON [Concomitant]
     Indication: Nutritional supplementation
     Dosage: UNK
     Route: 048
     Dates: start: 202110
  8. Cebion [Concomitant]
     Indication: Nutritional supplementation
     Dosage: UNK, QD
     Route: 048
     Dates: start: 202110
  9. LASIX [Concomitant]
     Active Substance: FUROSEMIDE
     Indication: Diuretic therapy
     Dosage: 0.5 DOSAGE FORM, QD
     Route: 048
     Dates: start: 201905, end: 20200620
  10. LASIX [Concomitant]
     Active Substance: FUROSEMIDE
     Dosage: 1 DOSAGE FORM, QD
     Route: 048
     Dates: start: 20200621, end: 20211123
  11. LASIX [Concomitant]
     Active Substance: FUROSEMIDE
     Dosage: 1 DOSAGE FORM, BID
     Route: 048
     Dates: start: 20211124
  12. OMEPRAZOLE [Concomitant]
     Active Substance: OMEPRAZOLE
     Indication: Prophylaxis
     Dosage: 20 MILLIGRAM, QD
     Route: 048
  13. ATENOLOL [Concomitant]
     Active Substance: ATENOLOL
     Indication: Hypertension
     Dosage: 100 MILLIGRAM, QD
     Route: 048
  14. MULTICENTRUM MYOMEGA3 [Concomitant]
     Indication: Supplementation therapy
     Dosage: 1 INTERNATIONAL UNIT, QD
     Route: 048
  15. VITAMINS [Concomitant]
     Active Substance: VITAMINS
     Indication: Supplementation therapy
     Dosage: 1 INTERNATIONAL UNIT, QD
     Route: 048
  16. ASCORBIC ACID [Concomitant]
     Active Substance: ASCORBIC ACID
     Indication: Supplementation therapy
     Dosage: 500 MILLIGRAM, QD
     Route: 048
  17. COUMADIN [Concomitant]
     Active Substance: WARFARIN SODIUM
     Indication: Prophylaxis
     Dosage: UNK
     Dates: start: 2019, end: 20201214
  18. LOPERAMIDE [Concomitant]
     Active Substance: LOPERAMIDE
     Indication: Prophylaxis against diarrhoea
     Dosage: 2 MILLIGRAM, TID
     Route: 048
     Dates: start: 201905
  19. PARVATI [Concomitant]
     Indication: Hypertension
     Dosage: 10 MILLIGRAM, QD
     Route: 048
     Dates: start: 2017
  20. CIPROFLOXACIN [Concomitant]
     Active Substance: CIPROFLOXACIN
     Indication: Prophylaxis
     Dosage: 500 MILLIGRAM, BID
     Route: 048
  21. METRONIDAZOLE [Concomitant]
     Active Substance: METRONIDAZOLE
     Indication: Prophylaxis
     Dosage: 250 MILLIGRAM, TID
     Route: 048
     Dates: start: 2017
  22. LACTOBACILLUS RHAMNOSUS [Concomitant]
     Active Substance: LACTOBACILLUS RHAMNOSUS
     Indication: Supplementation therapy
     Dosage: 1 INTERNATIONAL UNIT, QD
     Route: 048
     Dates: start: 201905
  23. FOLIC ACID [Concomitant]
     Active Substance: FOLIC ACID
     Indication: Supplementation therapy
     Dosage: 1 INTERNATIONAL UNIT, QD
     Route: 048
     Dates: start: 201906
  24. VITAMIN B12 [Concomitant]
     Active Substance: CYANOCOBALAMIN
     Indication: Supplementation therapy
     Dosage: 1000 INTERNATIONAL UNIT, MONTHLY
     Route: 065
  25. VITAMIN D [Concomitant]
     Active Substance: VITAMIN D NOS
     Indication: Supplementation therapy
     Dosage: 100000 INTERNATIONAL UNIT
     Route: 065
  26. LORMETAZEPAM [Concomitant]
     Active Substance: LORMETAZEPAM
     Indication: Sleep disorder
     Dosage: 1 GTT DROPS, QD
     Route: 048
     Dates: start: 201706
  27. SODIUM BICARBONATE [Concomitant]
     Active Substance: SODIUM BICARBONATE
     Indication: Diuretic therapy
     Dosage: 1 INTERNATIONAL UNIT, QD
     Route: 048
     Dates: start: 201905
  28. Luvion [Concomitant]
     Indication: Diuretic therapy
     Dosage: 100 MILLIGRAM, QD
     Route: 048
  29. ESOXX ONE [Concomitant]
     Indication: Supplementation therapy
     Dosage: 1 INTERNATIONAL UNIT
     Route: 048
     Dates: start: 2019
  30. ESOXX ONE [Concomitant]
     Indication: Short-bowel syndrome
  31. NITROGLYCERIN [Concomitant]
     Active Substance: NITROGLYCERIN
     Indication: Hypertension
     Dosage: 10 MILLIGRAM
     Route: 062
     Dates: start: 201906, end: 202002
  32. OLMESARTAN [Concomitant]
     Active Substance: OLMESARTAN
     Indication: Hypertension
     Dosage: 20 MILLIGRAM, QD
     Route: 048
     Dates: start: 202002
  33. AMLODIPINE [Concomitant]
     Active Substance: AMLODIPINE BESYLATE
     Indication: Hypertension
     Dosage: 10 MILLIGRAM, QD
     Route: 048
     Dates: start: 202002
  34. RAMIPRIL [Concomitant]
     Active Substance: RAMIPRIL
     Indication: Hypertension
     Dosage: 10 MILLIGRAM, QD
     Route: 048
     Dates: start: 202002
  35. KONAKION [Concomitant]
     Active Substance: PHYTONADIONE
     Dosage: 10 MILLIGRAM
     Route: 048
     Dates: start: 20201214
  36. ZINC SULFATE [Concomitant]
     Active Substance: ZINC SULFATE
     Indication: Supplementation therapy
     Dosage: 200 MILLIGRAM, QD
     Route: 048
     Dates: start: 202110

REACTIONS (6)
  - Campylobacter gastroenteritis [Recovered/Resolved]
  - Dehydration [Recovered/Resolved]
  - Dyspepsia [Recovered/Resolved]
  - Tremor [Recovered/Resolved]
  - Asthenia [Recovered/Resolved]
  - Oedema [Recovered/Resolved]

NARRATIVE: CASE EVENT DATE: 20211108
